FAERS Safety Report 5852754-5 (Version None)
Quarter: 2008Q3

REPORT INFORMATION
  Report Type: 
  Country: None (occurrence: None)
  Receive Date: 20080821
  Receipt Date: 20080813
  Transmission Date: 20090109
  Serious: Yes (Other)
  Sender: FDA-Public Use
  Company Number: US-JNJFOC-20080803335

PATIENT
  Sex: Female
  Weight: 76.66 kg

DRUGS (6)
  1. TOPAMAX [Suspect]
     Indication: MIGRAINE PROPHYLAXIS
     Dosage: 25MG TO 75MG A DAY
     Route: 048
  2. EFFEXOR [Concomitant]
     Indication: HEADACHE
     Route: 048
  3. NEXIUM [Concomitant]
     Indication: GASTROOESOPHAGEAL REFLUX DISEASE
     Route: 048
  4. CRESTOR [Concomitant]
     Indication: BLOOD CHOLESTEROL
  5. SYNTHROID [Concomitant]
     Indication: THYROID DISORDER
  6. MIRALAX [Concomitant]
     Indication: GASTROINTESTINAL DISORDER

REACTIONS (3)
  - AGITATION [None]
  - BLOOD POTASSIUM INCREASED [None]
  - LETHARGY [None]
